FAERS Safety Report 18410812 (Version 2)
Quarter: 2020Q4

REPORT INFORMATION
  Report Type: Spontaneous
  Country: US (occurrence: US)
  Receive Date: 20201021
  Receipt Date: 20201103
  Transmission Date: 20210114
  Serious: Yes (Hospitalization, Other)
  Sender: FDA-Public Use
  Company Number: US-BEXIMCO-2020BEX00153

PATIENT
  Sex: Female
  Weight: 61.24 kg

DRUGS (29)
  1. VITAMIN D3 [Concomitant]
     Active Substance: CHOLECALCIFEROL
     Dosage: 1000 IU, 1X/DAY
     Route: 048
  2. ZYRTEC [Concomitant]
     Active Substance: CETIRIZINE HYDROCHLORIDE
     Dosage: 10 MG, 1X/DAY
     Route: 048
     Dates: start: 2020
  3. KEPPRA [Concomitant]
     Active Substance: LEVETIRACETAM
     Indication: EPILEPSY
     Dosage: 500 MG, 2X/DAY
     Route: 048
     Dates: end: 202003
  4. TYLENOL [Concomitant]
     Active Substance: ACETAMINOPHEN
     Dosage: 650 MG, 4X/DAY (EVERY 6 HOURS) AS NEEDED FOR MILD PAIN (PAIN SCALE 1-3)
     Route: 048
  5. NORVASC [Concomitant]
     Active Substance: AMLODIPINE BESYLATE
     Dosage: 5 MG, 1X/DAY
     Route: 048
  6. ATENOLOL. [Concomitant]
     Active Substance: ATENOLOL
     Dosage: 12.5 MG, 1X/DAY
     Route: 048
  7. ZYRTEC [Concomitant]
     Active Substance: CETIRIZINE HYDROCHLORIDE
     Dosage: 10 MG, 2X/DAY (EVERY 12 HOURS)
     Dates: start: 202003, end: 2020
  8. KEPPRA [Concomitant]
     Active Substance: LEVETIRACETAM
     Dosage: 500 MG, 2X/DAY
     Route: 048
  9. ZYPREXA [Concomitant]
     Active Substance: OLANZAPINE
     Indication: AGITATION
     Dosage: 2.5 MG, 1X/DAY NIGHTLY FOR 14 DAYS
     Route: 048
  10. FAMOTIDINE. [Concomitant]
     Active Substance: FAMOTIDINE
     Indication: IDIOPATHIC URTICARIA
     Dosage: 20 MG, 2X/DAY
  11. LAMICTAL [Concomitant]
     Active Substance: LAMOTRIGINE
     Dosage: 50 MG, 2X/DAY FOR 2 DOSES, THEN STOP TAKING
     Dates: start: 202003, end: 202003
  12. PAXIL [Concomitant]
     Active Substance: PAROXETINE HYDROCHLORIDE
     Dosage: 10 MG, 1X/DAY, CAN BE TITRATED TO HIGHER DOSE IN NEAR FUTURE
     Route: 048
     Dates: start: 2020
  13. KLONOPIN [Concomitant]
     Active Substance: CLONAZEPAM
     Indication: SEIZURE
     Dosage: 0.5 MG, 1X/DAY NIGHTLY AS NEEDED FOR SEIZURES
  14. LAMICTAL [Concomitant]
     Active Substance: LAMOTRIGINE
     Dosage: 100 MG, 2X/DAY FOR 3 DOSES
     Dates: start: 202003, end: 202003
  15. LAMICTAL [Concomitant]
     Active Substance: LAMOTRIGINE
     Dosage: 150 MG, 2X/DAY
     Dates: start: 2020
  16. PAXIL [Concomitant]
     Active Substance: PAROXETINE HYDROCHLORIDE
     Indication: MAJOR DEPRESSION
     Dosage: 10 MG, 1X/DAY
     Dates: end: 202003
  17. WELLBUTRIN XL [Concomitant]
     Active Substance: BUPROPION HYDROCHLORIDE
     Indication: MAJOR DEPRESSION
  18. METFORMIN HYDROCHLORIDE. [Suspect]
     Active Substance: METFORMIN HYDROCHLORIDE
     Dosage: ^INCONSISTENT DOSAGE^
     Dates: start: 20200324, end: 20200402
  19. ZANTAC [Concomitant]
     Active Substance: RANITIDINE HYDROCHLORIDE
     Dosage: 150 MG, 2X/DAY
     Route: 048
  20. UNSPECIFIED ANTICOAGULATION [Concomitant]
  21. LAMICTAL [Concomitant]
     Active Substance: LAMOTRIGINE
     Indication: EPILEPSY
     Dosage: 150 MG, 2X/DAY
     Dates: end: 202003
  22. THIAMINE. [Concomitant]
     Active Substance: THIAMINE
     Dosage: 50 MG, 1X/DAY
     Route: 048
  23. METFORMIN HYDROCHLORIDE. [Suspect]
     Active Substance: METFORMIN HYDROCHLORIDE
     Indication: DIABETES MELLITUS
     Dosage: 500 MG, 1X/DAY
     Dates: start: 20200227, end: 20200323
  24. CRESTOR [Suspect]
     Active Substance: ROSUVASTATIN CALCIUM
     Indication: HYPERLIPIDAEMIA
     Dosage: UNK
     Dates: start: 201911, end: 202003
  25. ZYRTEC [Concomitant]
     Active Substance: CETIRIZINE HYDROCHLORIDE
     Indication: IDIOPATHIC URTICARIA
     Dosage: 10 MG, 1X/DAY
     Route: 048
  26. KEPPRA [Concomitant]
     Active Substance: LEVETIRACETAM
     Indication: EPILEPSY
     Dosage: 750 MG, 2X/DAY
     Route: 048
  27. PROTONIX [Concomitant]
     Active Substance: PANTOPRAZOLE SODIUM
     Dosage: 40 MG, 1X/DAY IN THE MORNING
  28. PAXIL [Concomitant]
     Active Substance: PAROXETINE HYDROCHLORIDE
     Indication: MAJOR DEPRESSION
     Dosage: 20 MG, 1X/DAY, EVERY MORNING
     Route: 048
     Dates: end: 2020
  29. ZYPREXA [Concomitant]
     Active Substance: OLANZAPINE
     Indication: DELUSION
     Dosage: 2.5 MG, 2X/DAY AS NEEDED FOR SEVERE AGITATION OR DELUSIONS FOR UP TO 30 DAYS
     Route: 048

REACTIONS (17)
  - Poor quality sleep [Unknown]
  - General physical health deterioration [Recovered/Resolved]
  - Weight decreased [Unknown]
  - Balance disorder [Recovered/Resolved]
  - Dystonia [Unknown]
  - Stupor [Recovered/Resolved]
  - Malaise [Recovered/Resolved]
  - Drug interaction [Recovered/Resolved]
  - Somnolence [Recovering/Resolving]
  - Psychotic disorder [Recovering/Resolving]
  - Dementia [Unknown]
  - Communication disorder [Recovered/Resolved]
  - Decreased appetite [Unknown]
  - Loss of personal independence in daily activities [Recovered/Resolved]
  - Toxic encephalopathy [Recovering/Resolving]
  - Fall [Recovered/Resolved]
  - Cyst [Unknown]

NARRATIVE: CASE EVENT DATE: 2020
